FAERS Safety Report 9356931 (Version 2)
Quarter: 2013Q3

REPORT INFORMATION
  Report Type: Spontaneous
  Country: US (occurrence: US)
  Receive Date: 20130620
  Receipt Date: 20130708
  Transmission Date: 20140515
  Serious: Yes (Other)
  Sender: FDA-Public Use
  Company Number: US-AMGEN-USASP2013042968

PATIENT
  Age: 63 Year
  Sex: Female
  Weight: 58.96 kg

DRUGS (2)
  1. PROLIA [Suspect]
     Indication: OSTEOPOROSIS
     Dosage: 60 MG, Q6MO
     Route: 058
     Dates: start: 20130614, end: 20130614
  2. CALCIUM +D                         /00944201/ [Concomitant]
     Indication: SUPPLEMENTATION THERAPY
     Dosage: 1200 MG, QD
     Dates: start: 2010

REACTIONS (9)
  - Laryngospasm [Recovered/Resolved]
  - Laryngeal oedema [Unknown]
  - Choking sensation [Recovered/Resolved]
  - Hypersensitivity [Unknown]
  - Anal spasm [Recovered/Resolved]
  - Pain [Recovered/Resolved]
  - Muscle tightness [Recovered/Resolved]
  - Fall [Recovered/Resolved]
  - Hypocalcaemia [Recovered/Resolved]
